FAERS Safety Report 14973083 (Version 2)
Quarter: 2018Q2

REPORT INFORMATION
  Report Type: Spontaneous
  Country: IT (occurrence: IT)
  Receive Date: 20180605
  Receipt Date: 20180614
  Transmission Date: 20180711
  Serious: Yes (Hospitalization)
  Sender: FDA-Public Use
  Company Number: IT-AUROBINDO-AUR-APL-2018-030483

PATIENT
  Age: 85 Year
  Sex: Male

DRUGS (3)
  1. LINEZOLID FILM COATED TABLET [Suspect]
     Active Substance: LINEZOLID
     Indication: PNEUMONITIS
     Dosage: 1200 MILLIGRAM
     Route: 048
     Dates: start: 20180423, end: 20180507
  2. FUROSEMIDE. [Concomitant]
     Active Substance: FUROSEMIDE
     Indication: HYPOTENSION
     Dosage: 500 MILLIGRAM
     Route: 048
     Dates: start: 20180424, end: 20180518
  3. ALLOPURINOL. [Concomitant]
     Active Substance: ALLOPURINOL
     Indication: HYPERURICAEMIA
     Dosage: 300 MILLIGRAM
     Route: 048

REACTIONS (2)
  - Anaemia [Recovered/Resolved]
  - Thrombocytopenia [Recovered/Resolved]

NARRATIVE: CASE EVENT DATE: 20180511
